FAERS Safety Report 16921368 (Version 6)
Quarter: 2020Q3

REPORT INFORMATION
  Report Type: Report from Study
  Country: US (occurrence: US)
  Receive Date: 20191015
  Receipt Date: 20200825
  Transmission Date: 20201102
  Serious: Yes (Hospitalization, Other)
  Sender: FDA-Public Use
  Company Number: US-ACTELION-A-US2015-116701

PATIENT
  Age: 61 Year
  Sex: Female
  Weight: 76.19 kg

DRUGS (11)
  1. VELETRI [Suspect]
     Active Substance: EPOPROSTENOL
     Indication: PULMONARY ARTERIAL HYPERTENSION
     Dosage: 25 NG/KG, PER MIN
     Route: 042
  2. LYRICA [Concomitant]
     Active Substance: PREGABALIN
     Dosage: 75 MG, UNK
  3. VITAMIN D [Concomitant]
     Active Substance: VITAMIN D NOS
     Dosage: 5000 UNK, UNK
  4. VELETRI [Suspect]
     Active Substance: EPOPROSTENOL
     Dosage: 16 NG/KG, PER MIN
     Route: 042
  5. TYVASO [Concomitant]
     Active Substance: TREPROSTINIL
  6. VELETRI [Suspect]
     Active Substance: EPOPROSTENOL
     Dosage: 14 NG/KG, PER MIN
     Route: 042
     Dates: start: 20150331
  7. VELETRI [Suspect]
     Active Substance: EPOPROSTENOL
     Dosage: 4 NG/KG, PER MIN
     Route: 042
     Dates: start: 20150305
  8. SILDENAFIL. [Concomitant]
     Active Substance: SILDENAFIL
  9. COUMADIN [Concomitant]
     Active Substance: WARFARIN SODIUM
  10. VELETRI [Suspect]
     Active Substance: EPOPROSTENOL
     Dosage: 25 NG/KG, PER MIN
     Route: 042
  11. OSTEO BI?FLEX [Concomitant]
     Active Substance: CHONDROITIN SULFATE A\GLUCOSAMINE
     Dosage: UNK, BID

REACTIONS (27)
  - Arthralgia [Unknown]
  - Pain in jaw [Unknown]
  - Dyspnoea exertional [Unknown]
  - Dyspnoea [Unknown]
  - Fatigue [Unknown]
  - Feeling abnormal [Unknown]
  - Anaemia [Unknown]
  - Limb injury [Unknown]
  - Diarrhoea [Unknown]
  - Asthenia [Not Recovered/Not Resolved]
  - Diverticulitis [Unknown]
  - Breast tenderness [Unknown]
  - Respiratory syncytial virus infection [Unknown]
  - Transfusion [Unknown]
  - Haematochezia [Unknown]
  - Fluid retention [Unknown]
  - Headache [Unknown]
  - Pain in extremity [Unknown]
  - Alopecia [Unknown]
  - Flushing [Unknown]
  - Chest discomfort [Unknown]
  - Feeling hot [Unknown]
  - Sinusitis [Not Recovered/Not Resolved]
  - Device physical property issue [Recovered/Resolved]
  - Rhinorrhoea [Unknown]
  - Chills [Unknown]
  - Dyschezia [Unknown]

NARRATIVE: CASE EVENT DATE: 20160927
